FAERS Safety Report 5400963-1 (Version None)
Quarter: 2007Q3

REPORT INFORMATION
  Report Type: 
  Country: None (occurrence: None)
  Receive Date: 20070730
  Receipt Date: 20070719
  Transmission Date: 20080115
  Serious: Yes (Hospitalization)
  Sender: FDA-Public Use
  Company Number: US-AMGEN-STX235248

PATIENT
  Sex: Female

DRUGS (1)
  1. ENBREL [Suspect]
     Indication: RHEUMATOID ARTHRITIS
     Route: 058
     Dates: start: 19990119

REACTIONS (5)
  - FALL [None]
  - FRACTURED SACRUM [None]
  - HEADACHE [None]
  - HIP FRACTURE [None]
  - LOWER LIMB FRACTURE [None]
